FAERS Safety Report 19716066 (Version 1)
Quarter: 2021Q3

REPORT INFORMATION
  Report Type: Report from Study
  Country: DE (occurrence: BR)
  Receive Date: 20210818
  Receipt Date: 20210818
  Transmission Date: 20211014
  Serious: Yes (Hospitalization)
  Sender: FDA-Public Use
  Company Number: BR-ELI_LILLY_AND_COMPANY-BR202108006426

PATIENT
  Age: 78 Year
  Sex: Male

DRUGS (1)
  1. CETUXIMAB. [Suspect]
     Active Substance: CETUXIMAB
     Indication: LARYNGEAL CANCER
     Dosage: UNK UNK, WEEKLY (1/W)
     Route: 042
     Dates: start: 20210526, end: 202107

REACTIONS (4)
  - Dysphagia [Recovered/Resolved]
  - Nail bed inflammation [Unknown]
  - Skin reaction [Recovering/Resolving]
  - Laryngeal pain [Recovered/Resolved]

NARRATIVE: CASE EVENT DATE: 202106
